FAERS Safety Report 6573645-0 (Version None)
Quarter: 2010Q1

REPORT INFORMATION
  Report Type: 
  Country: None (occurrence: None)
  Receive Date: 20100208
  Receipt Date: 20100130
  Transmission Date: 20100710
  Serious: Yes (Death, Hospitalization)
  Sender: FDA-Public Use
  Company Number: IN-JNJFOC-20100200967

PATIENT
  Age: 70 Year
  Sex: Male

DRUGS (2)
  1. REOPRO [Suspect]
     Indication: CORONARY ANGIOPLASTY
  2. EPTIFIBATIDE [Concomitant]
     Indication: DRUG USE FOR UNKNOWN INDICATION

REACTIONS (3)
  - CARDIO-RESPIRATORY ARREST [None]
  - THROMBOSIS [None]
  - THROMBOSIS IN DEVICE [None]
